FAERS Safety Report 12477189 (Version 1)
Quarter: 2016Q2

REPORT INFORMATION
  Report Type: Spontaneous
  Country: US (occurrence: US)
  Receive Date: 20160617
  Receipt Date: 20160617
  Transmission Date: 20160815
  Serious: Yes (Other)
  Sender: FDA-Public Use
  Company Number: US-TEVA-667601USA

PATIENT
  Sex: Female
  Weight: 69.46 kg

DRUGS (2)
  1. PROVIGIL [Suspect]
     Active Substance: MODAFINIL
     Indication: SOMNOLENCE
     Route: 065
  2. HERBAL SUPPLEMENTS [Concomitant]

REACTIONS (1)
  - Anal cancer [Unknown]
